FAERS Safety Report 9484252 (Version 2)
Quarter: 2013Q3

REPORT INFORMATION
  Report Type: Spontaneous
  Country: CA (occurrence: CA)
  Receive Date: 20130828
  Receipt Date: 20130828
  Transmission Date: 20140515
  Serious: Yes (Other)
  Sender: FDA-Public Use
  Company Number: CA-AMGEN-KDL310145

PATIENT
  Age: 64 Year
  Sex: Female
  Weight: 68.1 kg

DRUGS (1)
  1. ENBREL [Suspect]
     Indication: RHEUMATOID ARTHRITIS
     Dosage: UNK UNK, QWK
     Route: 058
     Dates: start: 20070201, end: 20081010

REACTIONS (6)
  - Eye swelling [Recovering/Resolving]
  - Haemoglobin decreased [Not Recovered/Not Resolved]
  - Nasopharyngitis [Unknown]
  - Chills [Unknown]
  - Injection site swelling [Unknown]
  - Injection site haemorrhage [Recovering/Resolving]
